FAERS Safety Report 15111351 (Version 2)
Quarter: 2018Q3

REPORT INFORMATION
  Report Type: Spontaneous
  Country: US (occurrence: US)
  Receive Date: 20180705
  Receipt Date: 20180730
  Transmission Date: 20181010
  Serious: Yes (Other)
  Sender: FDA-Public Use
  Company Number: US-B.I. PHARMACEUTICALS,INC./RIDGEFIELD-2018-BI-033749

PATIENT
  Age: 77 Year
  Sex: Male

DRUGS (14)
  1. ATROVENT [Suspect]
     Active Substance: IPRATROPIUM BROMIDE
     Indication: RHINITIS ATROPHIC
     Route: 065
     Dates: start: 20180424
  2. ATROVENT [Suspect]
     Active Substance: IPRATROPIUM BROMIDE
     Route: 045
     Dates: start: 20180425, end: 201805
  3. IBRUTINIB [Concomitant]
     Active Substance: IBRUTINIB
     Indication: CHRONIC LYMPHOCYTIC LEUKAEMIA
     Dosage: ONCE DAILY;  FORM STRENGTH: 420MG; FORMULATION: TABLET
     Route: 048
     Dates: start: 201708
  4. TESTOSTERONE. [Concomitant]
     Active Substance: TESTOSTERONE
     Indication: HYPOGONADISM
     Dosage: 1 APPLICATION DAILY;  FORM STRENGTH: 150MG
     Route: 065
     Dates: start: 201306
  5. LATANOPROST. [Concomitant]
     Active Substance: LATANOPROST
     Indication: INTRAOCULAR PRESSURE TEST
     Dosage: 1 DROP DAILY EACH EYE;
     Route: 065
     Dates: start: 201309
  6. LATANOPROST. [Concomitant]
     Active Substance: LATANOPROST
     Indication: GLAUCOMA
  7. FENOFIBRATE. [Concomitant]
     Active Substance: FENOFIBRATE
     Dosage: FORMULATION: TABLET;
  8. NATURE?THROID [Concomitant]
     Active Substance: THYROID, PORCINE
     Indication: HYPOTHYROIDISM
     Dosage: 1 TABLET DAILY;  FORM STRENGTH: 37.5MG; FORMULATION: TABLET
     Route: 048
     Dates: start: 201803
  9. ISDIN [Concomitant]
     Indication: ACTINIC KERATOSIS
     Route: 065
     Dates: start: 201801
  10. FENOFIBRATE. [Concomitant]
     Active Substance: FENOFIBRATE
     Indication: BLOOD TRIGLYCERIDES INCREASED
     Dosage: 1 TABLET DAILY;  FORM STRENGTH: 160MG; FORMULATION: TABLET
     Dates: start: 201608
  11. LEVOTHYROXINE. [Concomitant]
     Active Substance: LEVOTHYROXINE
     Indication: HYPOTHYROIDISM
     Dosage: 1 TABLET DAILY;  FORM STRENGTH: 35MCG; FORMULATION: TABLET
     Route: 048
     Dates: start: 2014
  12. LEVOTHYROXINE. [Concomitant]
     Active Substance: LEVOTHYROXINE
     Dosage: FORMULATION: TABLET;
  13. 5 FLUOROURACIL [Concomitant]
     Active Substance: FLUOROURACIL
     Indication: NEOPLASM MALIGNANT
     Dosage: UP TO 12 APPLICATIONS  A MONTH;
     Route: 065
     Dates: start: 2015
  14. DRY EYE [Concomitant]
     Indication: DRY EYE
     Dosage: AS NEEDED;
     Route: 065
     Dates: start: 2010

REACTIONS (3)
  - Off label use [Unknown]
  - Incorrect route of drug administration [Unknown]
  - Cardiac failure [Recovered/Resolved]

NARRATIVE: CASE EVENT DATE: 20180424
